FAERS Safety Report 23873989 (Version 2)
Quarter: 2024Q2

REPORT INFORMATION
  Report Type: Spontaneous
  Country: CN (occurrence: CN)
  Receive Date: 20240520
  Receipt Date: 20240524
  Transmission Date: 20240716
  Serious: Yes (Hospitalization, Other)
  Sender: FDA-Public Use
  Company Number: CN-SA-SAC20240518000022

PATIENT
  Age: 49 Year
  Sex: Male
  Weight: 76 kg

DRUGS (9)
  1. OXALIPLATIN [Suspect]
     Active Substance: OXALIPLATIN
     Indication: Hepatic cancer
     Dosage: 250.000000 MG , 1X
     Route: 041
     Dates: start: 20240409, end: 20240409
  2. TISLELIZUMAB [Concomitant]
     Active Substance: TISLELIZUMAB
     Dosage: UNK
  3. LENVATINIB MESYLATE [Concomitant]
     Active Substance: LENVATINIB MESYLATE
     Dosage: 12 MG, QD
  4. OMEPRAZOLE [Concomitant]
     Active Substance: DONEPEZIL HYDROCHLORIDE\OMEPRAZOLE\OMEPRAZOLE MAGNESIUM
     Dosage: UNK
     Dates: start: 20240416, end: 20240420
  5. NOREPINEPHRINE [Concomitant]
     Active Substance: NOREPINEPHRINE\NOREPINEPHRINE BITARTRATE
  6. OMEPRAZOLE SODIUM [Concomitant]
     Active Substance: OMEPRAZOLE SODIUM
     Dosage: 40 MG, QD
     Route: 041
     Dates: start: 20240428, end: 20240429
  7. RANITIDINE [Concomitant]
     Active Substance: RANITIDINE
     Dosage: 50MG , BID
     Route: 041
     Dates: start: 20240428, end: 20240429
  8. FLUOROURACIL [Concomitant]
     Active Substance: FLUOROURACIL
     Indication: Hepatic cancer
     Dosage: 4.850000G , 1X
     Route: 041
     Dates: start: 20240409, end: 20240410
  9. LEVOLEUCOVORIN CALCIUM [Concomitant]
     Active Substance: LEVOLEUCOVORIN CALCIUM
     Indication: Hepatic cancer
     Dosage: 400.000000 MG , 1X
     Route: 041
     Dates: start: 20240409, end: 20240509

REACTIONS (5)
  - Gastric ulcer [Unknown]
  - Erythema [Unknown]
  - Peripheral swelling [Unknown]
  - Abdominal pain [Unknown]
  - Vomiting [Unknown]

NARRATIVE: CASE EVENT DATE: 20240413
